FAERS Safety Report 4415668-3 (Version None)
Quarter: 2004Q3

REPORT INFORMATION
  Report Type: 
  Country: None (occurrence: None)
  Receive Date: 20040730
  Receipt Date: 20040717
  Transmission Date: 20050211
  Serious: Yes (Other)
  Sender: FDA-Public Use
  Company Number: 2004049605

PATIENT
  Sex: Female

DRUGS (10)
  1. NEURONTIN [Suspect]
     Indication: ILL-DEFINED DISORDER
  2. VICODIN [Suspect]
     Indication: ILL-DEFINED DISORDER
  3. OXYCOCET (OXYCODONE HYDROCHLORIDE, PARACETAMOL) [Suspect]
     Indication: ILL-DEFINED DISORDER
  4. CYCLOBENZAPRINE HCL [Suspect]
     Indication: ILL-DEFINED DISORDER
  5. NAPROXEN SODIUM [Suspect]
     Indication: ILL-DEFINED DISORDER
  6. MIDRID (CIDHLORALPHENAZONE, ISOMETHEPTENE, PARACETAMOL) [Suspect]
     Indication: ILL-DEFINED DISORDER
  7. ALL OTHER THERAPEUTIC PRODUCTS (ALL OTHER THERAPEUTIC PRODUCTS) [Concomitant]
  8. FLUOXETINE HYDROCHLORIDE [Concomitant]
  9. DIAZEPAM [Concomitant]
  10. NABUMETONE [Concomitant]

REACTIONS (1)
  - MIGRAINE [None]
